FAERS Safety Report 11976318 (Version 2)
Quarter: 2016Q1

REPORT INFORMATION
  Report Type: Spontaneous
  Country: US (occurrence: US)
  Receive Date: 20160129
  Receipt Date: 20160208
  Transmission Date: 20160526
  Serious: Yes (Other)
  Sender: FDA-Public Use
  Company Number: US-CIPLA LTD.-2016US00622

PATIENT

DRUGS (2)
  1. IRINOTECAN [Suspect]
     Active Substance: IRINOTECAN
     Indication: GLIOBLASTOMA MULTIFORME
     Dosage: 340 MG/M2 OR 125 MG/M2 ALONG WITH BEVACIZUMAB OVER 90 MINUTES ONCE EVERY 2 WEEKS
     Route: 042
  2. BEVACIZUMAB [Suspect]
     Active Substance: BEVACIZUMAB
     Indication: GLIOBLASTOMA MULTIFORME
     Dosage: 10 MG/KG, OVER 90 MINUTES ALONG WITH IRINOTECAN ONCE EVERY 2 WEEKS
     Route: 042

REACTIONS (1)
  - Haemorrhage intracranial [Unknown]
